FAERS Safety Report 7956996-4 (Version None)
Quarter: 2011Q4

REPORT INFORMATION
  Report Type: 
  Country: None (occurrence: None)
  Receive Date: 20111205
  Receipt Date: 20111205
  Transmission Date: 20120403
  Serious: Yes (Hospitalization, Disabling)
  Sender: FDA-Public Use
  Company Number: None

PATIENT
  Age: 55 Year
  Sex: Female
  Weight: 83 kg

DRUGS (20)
  1. VANCOMYCIN [Concomitant]
     Dosage: 1.25 GRAMS
     Route: 042
     Dates: start: 20111025, end: 20111027
  2. FLUDROCORTISONE ACETATE [Concomitant]
     Route: 048
  3. CALCITRIOL [Concomitant]
     Route: 048
  4. LACTOBACILLUS ACIDOPHILUS [Concomitant]
  5. ENOXAPARIN [Concomitant]
     Route: 058
  6. HYDROCORTISONE [Concomitant]
     Route: 042
  7. CALCIUM/VITAMIN D [Concomitant]
     Route: 048
  8. ASPIRIN [Concomitant]
     Route: 048
  9. CORTISONE ACETATE [Concomitant]
  10. VANCOMYCIN [Suspect]
     Indication: PNEUMONIA
     Dosage: 1 GRAM
     Route: 042
     Dates: start: 20111025, end: 20111025
  11. VANCOMYCIN [Suspect]
     Indication: IMMUNODEFICIENCY
     Dosage: 1 GRAM
     Route: 042
     Dates: start: 20111025, end: 20111025
  12. CALCITRIOL [Concomitant]
     Route: 048
  13. CORTISONE ACETATE [Concomitant]
  14. MAGNESIUM OXIDE [Concomitant]
  15. POTASSIUM CHLORIDE [Concomitant]
  16. ENOXAPARIN [Concomitant]
     Route: 058
  17. LEVOTHYROXINE SODIUM [Concomitant]
     Route: 048
  18. ROPINIROLE [Concomitant]
  19. VENLAFAXINE [Concomitant]
     Route: 048
  20. MODAFINIL [Concomitant]
     Route: 048

REACTIONS (2)
  - RENAL FAILURE ACUTE [None]
  - HAEMODIALYSIS [None]
